FAERS Safety Report 9226820 (Version 1)
Quarter: 2013Q1

REPORT INFORMATION
  Report Type: Spontaneous
  Country: US (occurrence: None)
  Receive Date: 20120926
  Receipt Date: 20120926
  Transmission Date: 20140127
  Serious: Yes (Other)
  Sender: FDA-Public Use
  Company Number: AUR-APL-201200614

PATIENT
  Age: 66 Year
  Sex: Female
  Weight: 48.54 kg

DRUGS (5)
  1. ALENDRONIC ACID ( ALENDRONIC ACID) [Suspect]
     Indication: OSTEOPOROSIS
     Dosage: 10 MG ( 70 MG, 1 IN 1 WK), ORAL
     Route: 048
  2. LEVOTHYROXINE ( LEVOTHYROXINE) [Concomitant]
  3. THEOPHYLLINE ( THEOPHYLLINE) [Concomitant]
  4. PRAVASTATIN ( PRAVASTATIN) [Concomitant]
  5. PRESERVISION ( PRESERVISION LUTEIN EYE VITA.+MIN. SUP. SOFTG.) [Concomitant]

REACTIONS (5)
  - Influenza like illness [None]
  - Myalgia [None]
  - Chills [None]
  - Nausea [None]
  - Malaise [None]
